FAERS Safety Report 8379582-3 (Version None)
Quarter: 2012Q2

REPORT INFORMATION
  Report Type: 
  Country: None (occurrence: None)
  Receive Date: 20120523
  Receipt Date: 20120515
  Transmission Date: 20120825
  Serious: No
  Sender: FDA-Public Use
  Company Number: US-ASTRAZENECA-2012SE17926

PATIENT
  Age: 56 Year
  Sex: Male
  Weight: 88 kg

DRUGS (6)
  1. INSULIN [Suspect]
     Route: 065
  2. TOPIRAMATE [Concomitant]
     Indication: MOOD SWINGS
     Route: 048
  3. TOPIRAMATE [Concomitant]
     Dosage: 100MG 1 TO 2 TIMES A DAY
     Route: 048
  4. LUNESTA [Concomitant]
     Indication: INSOMNIA
     Route: 048
  5. MIRTAZAPINE [Concomitant]
     Indication: DEPRESSION
     Route: 048
  6. SEROQUEL XR [Suspect]
     Indication: BIPOLAR DISORDER
     Route: 048

REACTIONS (6)
  - HALLUCINATION, AUDITORY [None]
  - DIABETES MELLITUS [None]
  - VISUAL IMPAIRMENT [None]
  - GLYCOSYLATED HAEMOGLOBIN INCREASED [None]
  - WEIGHT DECREASED [None]
  - HALLUCINATION [None]
